FAERS Safety Report 14546670 (Version 1)
Quarter: 2018Q1

REPORT INFORMATION
  Report Type: Spontaneous
  Country: US (occurrence: US)
  Receive Date: 20180219
  Receipt Date: 20180219
  Transmission Date: 20180509
  Serious: No
  Sender: FDA-Public Use
  Company Number: US-009507513-1802USA004909

PATIENT
  Age: 22 Year
  Sex: Female
  Weight: 56.69 kg

DRUGS (1)
  1. NEXPLANON [Suspect]
     Active Substance: ETONOGESTREL
     Indication: CONTRACEPTION
     Dosage: ONCE IN 3 YEARS, LEFT ARM
     Route: 059
     Dates: start: 20160807

REACTIONS (2)
  - Menstruation irregular [Unknown]
  - Menorrhagia [Unknown]
